FAERS Safety Report 6021860-7 (Version None)
Quarter: 2008Q4

REPORT INFORMATION
  Report Type: 
  Country: None (occurrence: None)
  Receive Date: 20081223
  Receipt Date: 20081212
  Transmission Date: 20090506
  Serious: Yes (Hospitalization)
  Sender: FDA-Public Use
  Company Number: 232970K08USA

PATIENT
  Age: 39 Year
  Sex: Female

DRUGS (3)
  1. REBIF [Suspect]
     Indication: MULTIPLE SCLEROSIS
     Dosage: 44 MCGK 3 IN 1 WEEKS, SUBCUTANEOUS
     Route: 058
     Dates: start: 20081030
  2. DILANTIN [Concomitant]
  3. INSULIN [Concomitant]

REACTIONS (4)
  - HYPERTENSION [None]
  - INCOHERENT [None]
  - MOVEMENT DISORDER [None]
  - TREMOR [None]
